FAERS Safety Report 14434836 (Version 1)
Quarter: 2018Q1

REPORT INFORMATION
  Report Type: Spontaneous
  Country: US (occurrence: US)
  Receive Date: 20180125
  Receipt Date: 20180125
  Transmission Date: 20180509
  Serious: Yes (Other)
  Sender: FDA-Public Use
  Company Number: US-AUROBINDO-AUR-APL-2018-002945

PATIENT
  Age: 27 Year
  Sex: Female

DRUGS (2)
  1. BUPIVACAINE HYDROCHLORIDE. [Suspect]
     Active Substance: BUPIVACAINE HYDROCHLORIDE
     Indication: EPIDURAL ANALGESIA
     Dosage: UNK
     Route: 008
  2. SUFENTANIL [Suspect]
     Active Substance: SUFENTANIL
     Indication: EPIDURAL ANALGESIA
     Dosage: UNK
     Route: 008

REACTIONS (7)
  - Nausea [Recovered/Resolved]
  - Maternal exposure during pregnancy [Unknown]
  - Device dislocation [Unknown]
  - Hypotension [Recovered/Resolved]
  - Dyspnoea [Recovered/Resolved]
  - Sensory level abnormal [Recovered/Resolved]
  - Motor dysfunction [Recovered/Resolved]
